FAERS Safety Report 6925355-5 (Version None)
Quarter: 2010Q3

REPORT INFORMATION
  Report Type: 
  Country: None (occurrence: None)
  Receive Date: 20100816
  Receipt Date: 20100805
  Transmission Date: 20110219
  Serious: Yes (Other)
  Sender: FDA-Public Use
  Company Number: US-JNJFOC-20100603728

PATIENT
  Age: 84 Year
  Sex: Female

DRUGS (5)
  1. REMICADE [Suspect]
     Indication: RHEUMATOID ARTHRITIS
     Route: 042
  2. FOSAMAX [Concomitant]
  3. CELEBREX [Concomitant]
  4. RESTASIS [Concomitant]
  5. ACETAMINOPHEN [Concomitant]

REACTIONS (1)
  - NEUROLOGICAL SYMPTOM [None]
